FAERS Safety Report 7220403-X (Version None)
Quarter: 2011Q1

REPORT INFORMATION
  Report Type: 
  Country: None (occurrence: None)
  Receive Date: 20110111
  Receipt Date: 20110107
  Transmission Date: 20110831
  Serious: Yes (Death)
  Sender: FDA-Public Use
  Company Number: CN-ROXANE LABORATORIES, INC.-2011-RO-00039RO

PATIENT
  Age: 39 Year
  Sex: Female

DRUGS (2)
  1. DEXAMETHASONE [Suspect]
     Indication: EOSINOPHILIC PNEUMONIA CHRONIC
     Dosage: 10 MG
     Route: 042
  2. SHUANGHUANGLIAN [Suspect]
     Indication: EOSINOPHILIC PNEUMONIA CHRONIC
     Dosage: 30 ML
     Route: 042

REACTIONS (1)
  - ANAPHYLACTIC SHOCK [None]
